FAERS Safety Report 23297015 (Version 1)
Quarter: 2023Q4

REPORT INFORMATION
  Report Type: Spontaneous
  Country: CH (occurrence: None)
  Receive Date: 20231214
  Receipt Date: 20231214
  Transmission Date: 20240109
  Serious: Yes (Other)
  Sender: FDA-Public Use
  Company Number: CH-ROCHE-3357786

PATIENT
  Age: 34 Year
  Sex: Male

DRUGS (2)
  1. MABTHERA [Suspect]
     Active Substance: RITUXIMAB
     Indication: Product used for unknown indication
     Dosage: IN 2015, HE HAD AN ALLERGIC REACTION TO MABTHERA
     Route: 065
  2. OBINUTUZUMAB [Suspect]
     Active Substance: OBINUTUZUMAB
     Indication: Immune thrombocytopenia
     Dosage: GAZYVARO IN 2020, ALLERGIC REACTION
     Route: 042

REACTIONS (4)
  - Drug hypersensitivity [Unknown]
  - Immune thrombocytopenia [Unknown]
  - Infection [Unknown]
  - Serum sickness [Unknown]

NARRATIVE: CASE EVENT DATE: 20150101
